FAERS Safety Report 9445230 (Version 1)
Quarter: 2013Q3

REPORT INFORMATION
  Report Type: Spontaneous
  Country: GB (occurrence: GB)
  Receive Date: 20130807
  Receipt Date: 20130807
  Transmission Date: 20140515
  Serious: Yes (Hospitalization)
  Sender: FDA-Public Use
  Company Number: GB-GLAXOSMITHKLINE-B0911801A

PATIENT
  Age: 71 Year
  Sex: Female

DRUGS (7)
  1. ROPINIROLE [Suspect]
     Indication: PARKINSON^S DISEASE
     Route: 048
     Dates: start: 201305, end: 201307
  2. DULOXETINE [Suspect]
     Indication: DEPRESSION
     Route: 048
     Dates: start: 201301, end: 201307
  3. CO-CARELDOPA [Concomitant]
  4. RASAGILINE [Concomitant]
  5. ALVERINE CITRATE [Concomitant]
  6. FUROSEMIDE [Concomitant]
  7. NITROFURANTOIN [Concomitant]

REACTIONS (1)
  - Drug-induced liver injury [Recovering/Resolving]
